FAERS Safety Report 9228194 (Version 1)
Quarter: 2013Q1

REPORT INFORMATION
  Report Type: Spontaneous
  Country: US (occurrence: None)
  Receive Date: 20121024
  Receipt Date: 20121024
  Transmission Date: 20140127
  Serious: Yes (Other)
  Sender: FDA-Public Use
  Company Number: DSA_58850_2012

PATIENT
  Sex: Male

DRUGS (1)
  1. WELLBUTRIN (NOT SPECIFIED) [Suspect]
     Indication: PRODUCT USED FOR UNKNOWN INDICATION
     Dosage: (DF ORAL)

REACTIONS (6)
  - Suicide attempt [None]
  - Suicidal ideation [None]
  - Convulsion [None]
  - Myocardial infarction [None]
  - Tremor [None]
  - Chest pain [None]
